FAERS Safety Report 4365723-1 (Version None)
Quarter: 2004Q2

REPORT INFORMATION
  Report Type: 
  Country: None (occurrence: None)
  Receive Date: 20040520
  Receipt Date: 20040510
  Transmission Date: 20050107
  Serious: Yes (Hospitalization)
  Sender: FDA-Public Use
  Company Number: 2004024873

PATIENT
  Age: 74 Year
  Sex: Female

DRUGS (16)
  1. TAHOR (ATORVASTATIN) [Suspect]
     Indication: ILL-DEFINED DISORDER
     Dosage: (DAILY), ORAL
     Route: 048
     Dates: start: 20020917
  2. DICLOFENAC SODIUM [Suspect]
     Indication: ILL-DEFINED DISORDER
     Dosage: 100 MG (DAILY), ORAL
     Route: 048
     Dates: start: 20021130
  3. FLUINDIONE (FLUINDIONE) [Suspect]
     Indication: ILL-DEFINED DISORDER
     Dosage: 10 MG (1 IN 1 D), ORAL
     Route: 048
     Dates: start: 20021207
  4. ROXITHROMYCIN (ROXITHROMYCIN) [Suspect]
     Indication: ILL-DEFINED DISORDER
     Dosage: 300 MG (DAILY), ORAL
     Route: 048
     Dates: start: 20021213
  5. LEVOTHYROXINE SODIUM [Suspect]
     Indication: ILL-DEFINED DISORDER
     Dosage: 100 MCG (DAILY), ORAL
     Route: 048
     Dates: start: 20020917
  6. AMIODARONE HCL [Suspect]
     Indication: ILL-DEFINED DISORDER
     Dosage: 200 MG (TUESDAY, THURSDAY,SATURDAY, SUNDAY), ORAL
     Route: 048
     Dates: start: 20020917
  7. ACETYLCYSTEINE [Concomitant]
  8. FLUCONAZOLE [Concomitant]
  9. SACCHAROMYCES BOULARDII [Concomitant]
  10. SODIUM POLYSTYRENE SULFONATE [Concomitant]
  11. TRAMADOL HYDROCHLORIDE [Concomitant]
  12. FUROSEMIDE [Concomitant]
  13. AMITRIPTYLINE HYDROCHLORIDE [Concomitant]
  14. OMEPRAZOLE [Concomitant]
  15. LORMETAZEPAM [Concomitant]
  16. RAMIPRIL [Concomitant]

REACTIONS (8)
  - ARTERIOVENOUS FISTULA SITE HAEMORRHAGE [None]
  - BLOOD FIBRINOGEN DECREASED [None]
  - COAGULATION FACTOR X LEVEL DECREASED [None]
  - DRUG INTERACTION [None]
  - HAEMATOCRIT DECREASED [None]
  - HAEMOGLOBIN DECREASED [None]
  - INTERNATIONAL NORMALISED RATIO INCREASED [None]
  - PROTHROMBIN LEVEL DECREASED [None]
